FAERS Safety Report 5305082-0 (Version None)
Quarter: 2007Q2

REPORT INFORMATION
  Report Type: 
  Country: None (occurrence: None)
  Receive Date: 20070423
  Receipt Date: 20070411
  Transmission Date: 20071010
  Serious: Yes (Hospitalization, Other)
  Sender: FDA-Public Use
  Company Number: JP-PFIZER INC-2004199692JP

PATIENT
  Sex: Male

DRUGS (11)
  1. CABASER [Suspect]
     Indication: PARKINSON'S DISEASE
     Dosage: DAILY DOSE:2MG-FREQ:DAILY
     Route: 048
     Dates: start: 20010101, end: 20031218
  2. SELEGILINE HYDROCHLORIDE [Concomitant]
     Route: 048
  3. SYMMETREL [Concomitant]
     Route: 048
  4. VALSARTAN [Concomitant]
  5. LANIRAPID [Concomitant]
  6. LASIX [Concomitant]
  7. TORSEMIDE [Concomitant]
  8. PERMAX [Concomitant]
  9. AMANTADINE HCL [Concomitant]
  10. NEO DOPASTON [Concomitant]
  11. TEPRENONE [Concomitant]

REACTIONS (6)
  - CARDIAC FAILURE [None]
  - GASTRIC ULCER [None]
  - INTERSTITIAL LUNG DISEASE [None]
  - MITRAL VALVE INCOMPETENCE [None]
  - MYOCARDIAL INFARCTION [None]
  - OEDEMA [None]
